FAERS Safety Report 21475266 (Version 2)
Quarter: 2022Q4

REPORT INFORMATION
  Report Type: Other
  Country: US (occurrence: None)
  Receive Date: 20221019
  Receipt Date: 20221026
  Transmission Date: 20230112
  Serious: Yes (Other)
  Sender: FDA-Public Use
  Company Number: US-ROCHE-3200891

PATIENT
  Age: 68 Year
  Sex: Female

DRUGS (2)
  1. ACTEMRA [Suspect]
     Active Substance: TOCILIZUMAB
     Indication: Rheumatoid arthritis
     Dosage: INJECT 162MG (1 SYRINGE) SUBCUTANEOUSLY EVERY WEEK
     Route: 058
  2. ACTEMRA [Suspect]
     Active Substance: TOCILIZUMAB
     Indication: Interstitial lung disease

REACTIONS (3)
  - Myocardial infarction [Unknown]
  - Oxygen saturation decreased [Unknown]
  - Gastroenteritis viral [Unknown]
